FAERS Safety Report 8332743-1 (Version None)
Quarter: 2012Q1

REPORT INFORMATION
  Report Type: 
  Country: None (occurrence: None)
  Receive Date: 20120327
  Receipt Date: 20110502
  Transmission Date: 20120608
  Serious: Yes (Other)
  Sender: FDA-Public Use
  Company Number: PHHY2010US10253

PATIENT
  Age: 64 Year
  Sex: Female
  Weight: 63 kg

DRUGS (4)
  1. GLEEVEC [Suspect]
     Indication: CHRONIC MYELOID LEUKAEMIA
     Dosage: 400 MG, QD, ORAL, 400 MG TABLET
     Route: 048
     Dates: start: 20091212
  2. VITAMIN D [Concomitant]
  3. THERA M PLUS TABLET [Concomitant]
  4. GREEN TEA CAPSULE [Concomitant]

REACTIONS (5)
  - EYE SWELLING [None]
  - RECTAL HAEMORRHAGE [None]
  - APPETITE DISORDER [None]
  - DYSGEUSIA [None]
  - EYELID OEDEMA [None]
